FAERS Safety Report 8722736 (Version 3)
Quarter: 2012Q4

REPORT INFORMATION
  Report Type: 
  Country: JP (occurrence: JP)
  Receive Date: 20120814
  Receipt Date: 20120904
  Transmission Date: 20130627
  Serious: Yes (Hospitalization)
  Sender: FDA-Public Use
  Company Number: JP-JNJFOC-20120804648

PATIENT
  Age: 40 Year
  Sex: Female

DRUGS (6)
  1. TRAMCET [Suspect]
     Indication: PAIN
     Dosage: 1 per 1 day
     Route: 048
  2. CELECOX [Concomitant]
     Dosage: 1 per 1 day
     Route: 048
  3. MARZULENE [Concomitant]
     Dosage: 1 per 1 day
     Route: 048
  4. DEPAS [Concomitant]
     Dosage: 1 per 1 day
     Route: 048
  5. MYONAL [Concomitant]
     Dosage: 1 per 1 day
     Route: 048
  6. PARIET [Concomitant]
     Dosage: 1 per 1 day
     Route: 048

REACTIONS (2)
  - Road traffic accident [Unknown]
  - Dizziness [Not Recovered/Not Resolved]
